FAERS Safety Report 10080691 (Version 1)
Quarter: 2014Q2

REPORT INFORMATION
  Report Type: Spontaneous
  Country: IT (occurrence: None)
  Receive Date: 20140414
  Receipt Date: 20140414
  Transmission Date: 20141212
  Serious: Yes (Other)
  Sender: FDA-Public Use
  Company Number: AUR-APL-2014-04429

PATIENT
  Age: 77 Year
  Sex: Female
  Weight: 83 kg

DRUGS (2)
  1. BISOPROLOL (BISOPROLOL) [Suspect]
     Indication: TACHYCARDIA
     Route: 048
     Dates: start: 20120201, end: 20120228
  2. ZOFENOPRIL [Suspect]
     Indication: HYPERTENSION
     Dosage: (30 MG, 1 D) , ORAL
     Route: 048
     Dates: start: 20120201, end: 20120202

REACTIONS (2)
  - Blood pressure increased [None]
  - Tachycardia [None]
